FAERS Safety Report 6542340-6 (Version None)
Quarter: 2010Q1

REPORT INFORMATION
  Report Type: 
  Country: None (occurrence: None)
  Receive Date: 20100119
  Receipt Date: 20091104
  Transmission Date: 20100710
  Serious: No
  Sender: FDA-Public Use
  Company Number: US-TYCO HEALTHCARE/MALLINCKRODT-T200902027

PATIENT
  Age: 54 Year
  Sex: Female

DRUGS (1)
  1. HYDROMORPHONE [Suspect]

REACTIONS (2)
  - DIZZINESS [None]
  - VISION BLURRED [None]
